FAERS Safety Report 6475211-4 (Version None)
Quarter: 2009Q4

REPORT INFORMATION
  Report Type: 
  Country: None (occurrence: None)
  Receive Date: 20091204
  Receipt Date: 20090810
  Transmission Date: 20100525
  Serious: Yes (Hospitalization, Other)
  Sender: FDA-Public Use
  Company Number: US-ELI_LILLY_AND_COMPANY-US200904001511

PATIENT
  Age: 31 Year
  Sex: Male
  Weight: 99.773 kg

DRUGS (8)
  1. ZYPREXA [Suspect]
     Dosage: 5 MG, UNKNOWN
     Dates: start: 20060315, end: 20070106
  2. ABILIFY [Concomitant]
     Dosage: UNK, UNKNOWN
     Dates: start: 20070101
  3. SEROQUEL [Concomitant]
     Dosage: UNK, UNKNOWN
     Dates: start: 20080101, end: 20090101
  4. GEODON [Concomitant]
     Dosage: UNK, UNKNOWN
     Dates: start: 20080101
  5. INSULIN                            /00646001/ [Concomitant]
     Indication: DIABETES MELLITUS
     Dosage: UNK, UNKNOWN
  6. EFFEXOR [Concomitant]
     Dates: start: 20070529
  7. PROZAC [Concomitant]
  8. WELLBUTRIN [Concomitant]

REACTIONS (7)
  - BLOOD CHOLESTEROL INCREASED [None]
  - BLOOD PRESSURE ABNORMAL [None]
  - BLOOD TRIGLYCERIDES INCREASED [None]
  - DIABETES MELLITUS [None]
  - DIABETIC KETOACIDOSIS [None]
  - HYPERGLYCAEMIA [None]
  - WEIGHT INCREASED [None]
